FAERS Safety Report 4439855-3 (Version None)
Quarter: 2004Q3

REPORT INFORMATION
  Report Type: 
  Country: None (occurrence: None)
  Receive Date: 20040902
  Receipt Date: 20040824
  Transmission Date: 20050211
  Serious: Yes (Other)
  Sender: FDA-Public Use
  Company Number: US-ROCHE-378487

PATIENT
  Age: 46 Year
  Sex: Male

DRUGS (11)
  1. KLONOPIN [Suspect]
     Indication: DRUG USE FOR UNKNOWN INDICATION
     Route: 065
  2. DURAGESIC [Suspect]
     Dosage: UNITS REPORTED AS MCG/HR
     Route: 062
     Dates: start: 20010615, end: 20010615
  3. DURAGESIC [Suspect]
     Dosage: UNIT REPORTED AS MCG/HR
     Route: 062
     Dates: start: 20010615
  4. DURAGESIC [Suspect]
     Dosage: UNITS REPORTED AS MCG/HR
     Route: 062
     Dates: start: 20010615
  5. DURAGESIC [Suspect]
     Dosage: UNITS REPORTED AS MCG/HR
     Route: 062
  6. DURAGESIC [Suspect]
     Dosage: UNITS REPORTED AS MCG/HR
     Route: 062
     Dates: start: 20040301
  7. PERCOCET [Suspect]
     Route: 048
  8. PAXIL [Concomitant]
  9. ALBUTEROL SULFATE [Concomitant]
  10. FLUTICASONE PROPIONATE [Concomitant]
  11. AZITHROMYCIN [Concomitant]

REACTIONS (14)
  - BLOOD UREA DECREASED [None]
  - CONFUSIONAL STATE [None]
  - CYANOSIS [None]
  - DEPRESSED LEVEL OF CONSCIOUSNESS [None]
  - DIZZINESS [None]
  - FATIGUE [None]
  - HEART RATE INCREASED [None]
  - LETHARGY [None]
  - LOGORRHOEA [None]
  - LOSS OF CONSCIOUSNESS [None]
  - MEAN PLATELET VOLUME ABNORMAL [None]
  - OVERDOSE [None]
  - SINUS TACHYCARDIA [None]
  - WHEEZING [None]
